FAERS Safety Report 22329556 (Version 1)
Quarter: 2023Q2

REPORT INFORMATION
  Report Type: Other
  Country: US (occurrence: None)
  Receive Date: 20230517
  Receipt Date: 20230517
  Transmission Date: 20230721
  Serious: No
  Sender: FDA-Public Use
  Company Number: US-ROCHE-3085320

PATIENT
  Age: 64 Year
  Sex: Female

DRUGS (18)
  1. TOCILIZUMAB [Suspect]
     Active Substance: TOCILIZUMAB
     Indication: COVID-19
     Dosage: 1ST DOSE
     Route: 042
  2. TOCILIZUMAB [Suspect]
     Active Substance: TOCILIZUMAB
     Indication: Cytokine release syndrome
  3. REMDESIVIR [Concomitant]
     Active Substance: REMDESIVIR
     Indication: COVID-19
     Dosage: 10-DAY COURSE
  4. FLUDARABINE [Concomitant]
     Active Substance: FLUDARABINE PHOSPHATE
     Indication: Allogenic stem cell transplantation
     Dosage: ON DAY -8
  5. MELPHALAN [Concomitant]
     Active Substance: MELPHALAN
     Indication: Allogenic stem cell transplantation
     Dosage: ON DAY -3
  6. TACROLIMUS [Concomitant]
     Active Substance: TACROLIMUS
     Indication: Prophylaxis against graft versus host disease
     Dosage: ON DAY -2
  7. SIROLIMUS [Concomitant]
     Active Substance: SIROLIMUS
     Indication: Prophylaxis against graft versus host disease
     Dosage: ON DAY -2 LOADING DOSE
  8. LOVENOX [Concomitant]
     Active Substance: ENOXAPARIN SODIUM
     Indication: COVID-19
  9. ZINC [Concomitant]
     Active Substance: ZINC
  10. COVID-19 CONVALESCENT PLASMA [Concomitant]
     Active Substance: COVID-19 CONVALESCENT PLASMA
     Indication: COVID-19
     Dosage: ON DAY +2
  11. SOLU-MEDROL [Concomitant]
     Active Substance: METHYLPREDNISOLONE SODIUM SUCCINATE
     Indication: Engraftment syndrome
     Route: 042
  12. REGEN-COV [Concomitant]
     Active Substance: CASIRIVIMAB\IMDEVIMAB
     Indication: COVID-19
  13. PREDNISONE [Concomitant]
     Active Substance: PREDNISONE
     Indication: Chronic graft versus host disease
  14. TOZINAMERAN [Concomitant]
     Active Substance: TOZINAMERAN
     Indication: COVID-19 immunisation
     Dosage: ON DAYS +212 AND +242
  15. FLAGYL [Concomitant]
     Active Substance: METRONIDAZOLE\METRONIDAZOLE HYDROCHLORIDE
     Indication: Giardiasis
     Dosage: COMPLETED 7-DAY COURSE
  16. BUDESONIDE [Concomitant]
     Active Substance: BUDESONIDE
     Indication: Diarrhoea
  17. OXYGEN [Concomitant]
     Active Substance: OXYGEN
     Dosage: O2 VIA NASAL CANNULA, OVERNIGHT ON DAY 24 AND 25
     Route: 045
  18. OCTREOTIDE [Concomitant]
     Active Substance: OCTREOTIDE
     Indication: Diarrhoea

REACTIONS (2)
  - Off label use [Unknown]
  - No adverse event [Unknown]
